FAERS Safety Report 8596917-7 (Version None)
Quarter: 2012Q3

REPORT INFORMATION
  Report Type: 
  Country: None (occurrence: None)
  Receive Date: 20120815
  Receipt Date: 20120810
  Transmission Date: 20120928
  Serious: Yes (Other)
  Sender: FDA-Public Use
  Company Number: CA-ROCHE-1101061

PATIENT
  Sex: Female
  Weight: 60 kg

DRUGS (2)
  1. ACTEMRA [Suspect]
     Indication: RHEUMATOID ARTHRITIS
     Route: 042
     Dates: start: 20120809
  2. DEPO-MEDROL [Concomitant]

REACTIONS (3)
  - DIZZINESS [None]
  - VISUAL IMPAIRMENT [None]
  - CHEST PAIN [None]
